FAERS Safety Report 10074594 (Version 2)
Quarter: 2014Q2

REPORT INFORMATION
  Report Type: Other
  Country: US (occurrence: US)
  Receive Date: 20140411
  Receipt Date: 20140507
  Transmission Date: 20141212
  Serious: Yes (Death, Other)
  Sender: FDA-Public Use
  Company Number: US-ACORDA-ACO_102730_2014

PATIENT
  Age: 69 Year
  Sex: Female
  Weight: 74.83 kg

DRUGS (3)
  1. AMPYRA [Suspect]
     Indication: GAIT DISTURBANCE
     Dosage: 10 MG, BID
     Route: 048
     Dates: start: 2010
  2. ANTIHYPERTENSIVES [Concomitant]
     Indication: HYPERTENSION
     Dosage: UNK
     Route: 065
  3. REBIF [Concomitant]
     Indication: MULTIPLE SCLEROSIS
     Dosage: UNK

REACTIONS (1)
  - Myocardial infarction [Fatal]
